FAERS Safety Report 7112463-1 (Version None)
Quarter: 2010Q4

REPORT INFORMATION
  Report Type: 
  Country: None (occurrence: None)
  Receive Date: 20101119
  Receipt Date: 20100602
  Transmission Date: 20110411
  Serious: Yes (Hospitalization, Other)
  Sender: FDA-Public Use
  Company Number: US-BAYER-200938676NA

PATIENT
  Age: 22 Year
  Sex: Female
  Weight: 59 kg

DRUGS (15)
  1. YASMIN [Suspect]
     Indication: PRODUCT USED FOR UNKNOWN INDICATION
     Dosage: 12 WEEKS, FOLLOWED BY A 7 DAYS TABLET FREE INTERVAL
     Route: 048
     Dates: start: 20010101, end: 20070101
  2. MIRENA [Suspect]
     Indication: CONTRACEPTION
     Dosage: FREQUENCY: CONTINUIUS
     Route: 015
     Dates: start: 20080101
  3. UNKNOWN DRUG [Concomitant]
     Indication: MIGRAINE
     Route: 065
  4. ASCORBIC ACID [Concomitant]
     Route: 065
  5. ALBUTEROL [Concomitant]
     Route: 065
     Dates: start: 20000101
  6. VANCERIL [Concomitant]
     Route: 065
     Dates: start: 20000101
  7. SEREVENT [Concomitant]
     Route: 065
     Dates: start: 20000101
  8. SYMBICORT [Concomitant]
     Route: 065
     Dates: start: 20000101
  9. PROVENTAL [Concomitant]
     Route: 065
     Dates: start: 20000101
  10. NSAIDS [Concomitant]
     Route: 065
  11. CLOBETASOL PROPIONATE [Concomitant]
     Indication: SKIN IRRITATION
     Dates: start: 20071001
  12. GAS-X [Concomitant]
     Indication: PAIN
     Route: 065
     Dates: start: 20071216
  13. ADVIL [Concomitant]
     Indication: PAIN
     Route: 065
     Dates: start: 20071215
  14. TUMS [Concomitant]
     Indication: PAIN
     Route: 065
     Dates: start: 20071215
  15. VICODIN [Concomitant]
     Indication: SLEEP DISORDER THERAPY
     Route: 065

REACTIONS (7)
  - ABDOMINAL PAIN LOWER [None]
  - BLADDER DILATATION [None]
  - CHEST PAIN [None]
  - DYSPAREUNIA [None]
  - DYSURIA [None]
  - PULMONARY EMBOLISM [None]
  - URINARY TRACT INFECTION [None]
